FAERS Safety Report 9757820 (Version 3)
Quarter: 2014Q1

REPORT INFORMATION
  Report Type: Spontaneous
  Country: PT (occurrence: PT)
  Receive Date: 20131216
  Receipt Date: 20140101
  Transmission Date: 20141002
  Serious: Yes (Other)
  Sender: FDA-Public Use
  Company Number: PT-ROCHE-1314109

PATIENT
  Age: 42 Year
  Sex: Female

DRUGS (2)
  1. AVASTIN [Suspect]
     Indication: PRODUCT USED FOR UNKNOWN INDICATION
     Route: 031
  2. AVASTIN [Suspect]
     Dosage: ONE INJECTION IN RIGHT EYE.
     Route: 031
     Dates: start: 20131217

REACTIONS (4)
  - Drug ineffective [Unknown]
  - Blindness [Not Recovered/Not Resolved]
  - Panic attack [Not Recovered/Not Resolved]
  - Off label use [Unknown]
